FAERS Safety Report 16295282 (Version 1)
Quarter: 2019Q2

REPORT INFORMATION
  Report Type: Spontaneous
  Country: IT (occurrence: IT)
  Receive Date: 20190509
  Receipt Date: 20190509
  Transmission Date: 20190711
  Serious: Yes (Other)
  Sender: FDA-Public Use
  Company Number: IT-TEVA-2019-IT-1047361

PATIENT
  Age: 48 Year
  Sex: Female
  Weight: 67 kg

DRUGS (2)
  1. ETOPOSIDE. [Suspect]
     Active Substance: ETOPOSIDE
     Indication: OVARIAN GRANULOSA CELL TUMOUR
     Dates: start: 20181207, end: 20190123
  2. CISPLATIN. [Suspect]
     Active Substance: CISPLATIN
     Indication: OVARIAN GRANULOSA CELL TUMOUR
     Route: 042
     Dates: start: 20181207, end: 20190123

REACTIONS (2)
  - Thrombocytopenia [Recovering/Resolving]
  - Neutrophilia [Recovering/Resolving]

NARRATIVE: CASE EVENT DATE: 20190118
